FAERS Safety Report 9258577 (Version 2)
Quarter: 2014Q1

REPORT INFORMATION
  Report Type: Spontaneous
  Country: US (occurrence: None)
  Receive Date: 20121212
  Receipt Date: 20130314
  Transmission Date: 20141002
  Serious: No
  Sender: FDA-Public Use
  Company Number: 1210USA012992

PATIENT
  Age: 58 Year
  Sex: Male

DRUGS (3)
  1. VICTRELIS [Suspect]
     Indication: HEPATITIS C
     Dosage: 4 DF , Q8H, ORAL
     Route: 048
  2. PEGASYS (PEGINTERFERON ALFA-2A) [Suspect]
     Route: 048
  3. RIBASPHERE [Suspect]
     Dosage: 3 TABLETS IN MORNING, 3 TABLETS IN EVENING, ORAL
     Route: 048

REACTIONS (5)
  - Lethargy [None]
  - Nausea [None]
  - Diarrhoea [None]
  - White blood cell count decreased [None]
  - Platelet count decreased [None]
